FAERS Safety Report 7164178-1 (Version None)
Quarter: 2010Q4

REPORT INFORMATION
  Report Type: 
  Country: None (occurrence: None)
  Receive Date: 20101203
  Receipt Date: 20101118
  Transmission Date: 20110411
  Serious: Yes (Hospitalization)
  Sender: FDA-Public Use
  Company Number: 019835

PATIENT
  Sex: Female

DRUGS (15)
  1. CIMZIA [Suspect]
     Indication: COLITIS ULCERATIVE
     Dosage: (400 MG 1X/MONTH SUBCUTANEOUS) (SUBCUTANEOUS)
     Route: 058
     Dates: start: 20091101, end: 20100901
  2. CIMZIA [Suspect]
     Indication: COLITIS ULCERATIVE
     Dosage: (400 MG 1X/MONTH SUBCUTANEOUS) (SUBCUTANEOUS)
     Route: 058
     Dates: start: 20101006
  3. LEVOTHYROXINE [Concomitant]
  4. UNKNOWN [Concomitant]
  5. MUCINEX [Concomitant]
  6. ASACOL [Concomitant]
  7. OMEPRAZOLE [Concomitant]
  8. METOPROLOL TARTRATE [Concomitant]
  9. ISOSORBIDE DINITRATE [Concomitant]
  10. CRESTOR [Concomitant]
  11. NASONEX [Concomitant]
  12. LISINOPRIL [Concomitant]
  13. PRILOSEC [Concomitant]
  14. EASPRIN [Concomitant]
  15. TYLENOL (CAPLET) [Concomitant]

REACTIONS (3)
  - BURSITIS [None]
  - CELLULITIS [None]
  - SEPTIC ARTHRITIS STAPHYLOCOCCAL [None]
